FAERS Safety Report 19537423 (Version 1)
Quarter: 2021Q3

REPORT INFORMATION
  Report Type: Spontaneous
  Country: GB (occurrence: GB)
  Receive Date: 20210713
  Receipt Date: 20210713
  Transmission Date: 20211014
  Serious: Yes (Life-Threatening)
  Sender: FDA-Public Use
  Company Number: GB-TEVA-2021-GB-1930931

PATIENT
  Age: 45 Year
  Sex: Female
  Weight: 89.81 kg

DRUGS (2)
  1. VENLAFAXINE [Suspect]
     Active Substance: VENLAFAXINE HYDROCHLORIDE
     Dosage: 225 MG
     Route: 048
     Dates: start: 20080701
  2. AMISULPRIDE [Concomitant]
     Active Substance: AMISULPRIDE
     Dosage: 50 MG

REACTIONS (6)
  - Depression [Unknown]
  - Arthralgia [Unknown]
  - Hypoaesthesia [Unknown]
  - Drug withdrawal syndrome [Not Recovered/Not Resolved]
  - Fatigue [Unknown]
  - Back pain [Unknown]

NARRATIVE: CASE EVENT DATE: 20080701
